FAERS Safety Report 4945483-3 (Version None)
Quarter: 2006Q1

REPORT INFORMATION
  Report Type: 
  Country: None (occurrence: None)
  Receive Date: 20060315
  Receipt Date: 20060315
  Transmission Date: 20060701
  Serious: Yes (Life-Threatening, Other)
  Sender: FDA-Public Use
  Company Number: None

PATIENT
  Age: 48 Year
  Sex: Male
  Weight: 106.5953 kg

DRUGS (2)
  1. CYMBALTA [Suspect]
     Indication: ANXIETY
     Dosage: 60 MGS TWICE A DAY PO
     Route: 048
     Dates: start: 20050901, end: 20060116
  2. CYMBALTA [Suspect]
     Indication: MAJOR DEPRESSION
     Dosage: 60 MGS TWICE A DAY PO
     Route: 048
     Dates: start: 20050901, end: 20060116

REACTIONS (2)
  - SUICIDAL IDEATION [None]
  - TREATMENT NONCOMPLIANCE [None]
